FAERS Safety Report 15642685 (Version 7)
Quarter: 2019Q3

REPORT INFORMATION
  Report Type: Report from Study
  Country: ES (occurrence: ES)
  Receive Date: 20181121
  Receipt Date: 20190701
  Transmission Date: 20191004
  Serious: Yes (Other)
  Sender: FDA-Public Use
  Company Number: ES-ROCHE-2215766

PATIENT
  Age: 45 Year
  Sex: Female
  Weight: 55 kg

DRUGS (9)
  1. DEXCLORFENIRAMINA [Concomitant]
     Active Substance: DEXCHLORPHENIRAMINE
     Indication: URTICARIA
     Route: 048
     Dates: start: 20180415, end: 20180418
  2. OCRELIZUMAB. [Suspect]
     Active Substance: OCRELIZUMAB
     Indication: RELAPSING-REMITTING MULTIPLE SCLEROSIS
     Dosage: TWO 300 MILLIGRAM (MG) INFUSIONS (INFUSION LENGTH=2.5 HOURS) ON DAYS 1 AND 15, FOLLOWED BY ONE 600 M
     Route: 042
     Dates: start: 20171204
  3. METHYLPREDNISOLONE. [Suspect]
     Active Substance: METHYLPREDNISOLONE
     Indication: PREMEDICATION
     Dosage: 18/DEC/2017 (VISIT 3), 22/MAY/2018 (VISIT 5), 31/JAN/2019 (VISIT 6)
     Route: 042
     Dates: start: 20171204
  4. SOLIFENACINE [Concomitant]
     Route: 048
     Dates: start: 20180512, end: 20180612
  5. METHYLPREDNISOLONE. [Suspect]
     Active Substance: METHYLPREDNISOLONE
     Indication: URTICARIA
     Dosage: RECEIVED FOR URTICARIA
     Route: 030
     Dates: start: 20180415
  6. DEXCLORFENIRAMINA [Concomitant]
     Active Substance: DEXCHLORPHENIRAMINE
     Dosage: 04/DEC/2017: 1 AMPULE?ONCE BEFORE INFUSION
     Route: 042
  7. PARACETAMOL [Concomitant]
     Active Substance: ACETAMINOPHEN
     Dosage: 04/DEC/2017, 18/DEC/2017 AND 22/MAY/2018: ONCE BEFORE INFUSION?31/JAN/2019
     Route: 042
  8. MIRABEGRON [Concomitant]
     Active Substance: MIRABEGRON
     Route: 048
     Dates: start: 20180613, end: 20180713
  9. DEXCLORFENIRAMINA [Concomitant]
     Active Substance: DEXCHLORPHENIRAMINE
     Dosage: 18/DEC/2017, 22/MAY/2018, 31/JAN/2019?ONCE BEFORE INFUSION
     Route: 065

REACTIONS (1)
  - Cervical dysplasia [Recovered/Resolved]

NARRATIVE: CASE EVENT DATE: 20181030
